FAERS Safety Report 12846963 (Version 4)
Quarter: 2016Q4

REPORT INFORMATION
  Report Type: Report from Study
  Country: US (occurrence: US)
  Receive Date: 20161014
  Receipt Date: 20161201
  Transmission Date: 20170207
  Serious: Yes (Hospitalization)
  Sender: FDA-Public Use
  Company Number: PHEH2016US026058

PATIENT
  Age: 26 Year
  Sex: Female
  Weight: 78.3 kg

DRUGS (1)
  1. COSENTYX [Suspect]
     Active Substance: SECUKINUMAB
     Indication: SPONDYLOARTHROPATHY
     Dosage: 150 MG, QW
     Route: 058
     Dates: start: 20160920, end: 20160922

REACTIONS (4)
  - Pyelonephritis [Unknown]
  - Urinary tract infection [Unknown]
  - Kidney infection [Recovering/Resolving]
  - Nephrolithiasis [Not Recovered/Not Resolved]

NARRATIVE: CASE EVENT DATE: 20160922
